FAERS Safety Report 8027326-7 (Version None)
Quarter: 2012Q1

REPORT INFORMATION
  Report Type: 
  Country: None (occurrence: None)
  Receive Date: 20120106
  Receipt Date: 20120102
  Transmission Date: 20120608
  Serious: Yes (Hospitalization)
  Sender: FDA-Public Use
  Company Number: FR-BRISTOL-MYERS SQUIBB COMPANY-16325938

PATIENT
  Age: 64 Year
  Sex: Male

DRUGS (13)
  1. ETIOVEN [Concomitant]
  2. ATENOLOL [Suspect]
     Route: 048
  3. ACETAMINOPHEN [Suspect]
     Dates: start: 20110201
  4. METHOTREXATE [Concomitant]
     Dosage: RESUMED ON 04AUG2011
  5. FOLIC ACID [Concomitant]
     Dosage: RESUMED ON 04AUG2011
  6. EZETIMIBE [Suspect]
     Route: 048
  7. ESCITALOPRAM OXALATE [Suspect]
     Route: 048
  8. ALPRAZOLAM [Concomitant]
  9. ORENCIA [Suspect]
     Indication: RHEUMATOID ARTHRITIS
     Dosage: INTERRUPTED ON 17OCT2011
     Route: 042
     Dates: start: 20080101
  10. LEGALON [Concomitant]
  11. LANSOPRAZOLE [Suspect]
     Route: 048
  12. TANAKAN [Concomitant]
  13. BIPERIDYS [Concomitant]

REACTIONS (1)
  - GLOMERULONEPHRITIS MEMBRANOUS [None]
